FAERS Safety Report 4441978-X (Version None)
Quarter: 2004Q3

REPORT INFORMATION
  Report Type: 
  Country: None (occurrence: None)
  Receive Date: 20040907
  Receipt Date: 20040826
  Transmission Date: 20050211
  Serious: Yes (Hospitalization)
  Sender: FDA-Public Use
  Company Number: GB-GLAXOSMITHKLINE-B0343650A

PATIENT
  Age: 36 Year
  Sex: Male

DRUGS (2)
  1. SEROXAT [Suspect]
     Route: 065
  2. MULTIPLE MEDICATION [Concomitant]
     Route: 065

REACTIONS (2)
  - ACUTE CORONARY SYNDROME [None]
  - POLYCYTHAEMIA [None]
